FAERS Safety Report 18770580 (Version 1)
Quarter: 2021Q1

REPORT INFORMATION
  Report Type: Spontaneous
  Country: CA (occurrence: CA)
  Receive Date: 20210122
  Receipt Date: 20210122
  Transmission Date: 20210419
  Serious: Yes (Hospitalization)
  Sender: FDA-Public Use
  Company Number: CA-TEVA-2021-CA-1870782

PATIENT
  Age: 85 Year
  Sex: Female

DRUGS (6)
  1. AMLODIPINE [Concomitant]
     Active Substance: AMLODIPINE BESYLATE
  2. LORAZEPAM. [Suspect]
     Active Substance: LORAZEPAM
     Route: 065
  3. EZETIMIBE. [Concomitant]
     Active Substance: EZETIMIBE
  4. FENOFIBRATE. [Concomitant]
     Active Substance: FENOFIBRATE
  5. PANTOPRAZOLE [Concomitant]
     Active Substance: PANTOPRAZOLE
  6. PMS?BACLOFEN TAB 20MG [Suspect]
     Active Substance: BACLOFEN

REACTIONS (1)
  - Delirium [Recovered/Resolved]
